FAERS Safety Report 15805222 (Version 1)
Quarter: 2019Q1

REPORT INFORMATION
  Report Type: Spontaneous
  Country: US (occurrence: US)
  Receive Date: 20190110
  Receipt Date: 20190110
  Transmission Date: 20190417
  Serious: Yes (Hospitalization, Other)
  Sender: FDA-Public Use
  Company Number: US-PFIZER INC-2019010557

PATIENT
  Age: 47 Year
  Sex: Male

DRUGS (2)
  1. SOMAVERT [Suspect]
     Active Substance: PEGVISOMANT
     Indication: ACROMEGALY
     Dosage: UNK (HIGHER DOSE OF SOMAVERT)
  2. SOMAVERT [Suspect]
     Active Substance: PEGVISOMANT
     Dosage: 15 MG, 2X/DAY
     Route: 058
     Dates: start: 2015

REACTIONS (3)
  - Product use issue [Unknown]
  - Gastrointestinal disorder [Recovered/Resolved]
  - Cholelithiasis [Unknown]
